FAERS Safety Report 12373296 (Version 1)
Quarter: 2016Q2

REPORT INFORMATION
  Report Type: Spontaneous
  Country: AU (occurrence: AU)
  Receive Date: 20160516
  Receipt Date: 20160516
  Transmission Date: 20160815
  Serious: Yes (Other)
  Sender: FDA-Public Use
  Company Number: AU-HQ SPECIALTY-AU-2016INT000275

PATIENT
  Age: 15 Year
  Sex: Female

DRUGS (3)
  1. MEGAFOL [Suspect]
     Active Substance: FOLIC ACID
     Indication: ARTHRITIS
     Dosage: UNK
  2. NAPROSYN [Suspect]
     Active Substance: NAPROXEN
     Indication: ARTHRITIS
     Dosage: 1000 MG, 1 D
  3. METHOTREXATE SODIUM. [Suspect]
     Active Substance: METHOTREXATE SODIUM
     Indication: ARTHRITIS
     Dosage: 3.5714 MG (25 MG, 1 IN 1 W)

REACTIONS (2)
  - Juvenile idiopathic arthritis [Unknown]
  - Joint destruction [Unknown]

NARRATIVE: CASE EVENT DATE: 20141204
